FAERS Safety Report 8080068-4 (Version None)
Quarter: 2012Q1

REPORT INFORMATION
  Report Type: 
  Country: None (occurrence: None)
  Receive Date: 20120128
  Receipt Date: 20110823
  Transmission Date: 20120608
  Serious: No
  Sender: FDA-Public Use
  Company Number: US-ABBOTT-11P-163-0848890-00

PATIENT
  Age: 60 Year
  Sex: Female

DRUGS (11)
  1. PREMARIN [Concomitant]
     Indication: HORMONE REPLACEMENT THERAPY
  2. LORAZEPAM [Concomitant]
     Dosage: 4 TIMES DAILY AS NEEDED
  3. LAMICTAL [Concomitant]
     Dosage: 100MG DAY + 200MG AT NIGHT
  4. TOPAMAX [Concomitant]
     Indication: DEPRESSION
  5. LORAZEPAM [Concomitant]
     Indication: ANXIETY
     Dosage: 2MG DAILY AS NEEDED
  6. HUMIRA [Suspect]
     Indication: PSORIASIS
     Dates: start: 20110713
  7. SELEGILINE [Concomitant]
     Indication: DEPRESSION
  8. LAMICTAL [Concomitant]
     Indication: PRODUCT USED FOR UNKNOWN INDICATION
  9. PRAVACHOL [Concomitant]
     Indication: BLOOD CHOLESTEROL INCREASED
  10. NORVASC [Concomitant]
     Indication: HYPERTENSION
     Dosage: AT BEDTIME
  11. SEROQUEL [Concomitant]
     Indication: ANXIETY

REACTIONS (4)
  - FATIGUE [None]
  - PAIN [None]
  - IRRITABILITY [None]
  - PUSTULAR PSORIASIS [None]
